FAERS Safety Report 10043275 (Version 1)
Quarter: 2014Q1

REPORT INFORMATION
  Report Type: Spontaneous
  Country: US (occurrence: None)
  Receive Date: 20140327
  Receipt Date: 20140327
  Transmission Date: 20141002
  Serious: Yes (Hospitalization)
  Sender: FDA-Public Use
  Company Number: None

PATIENT
  Age: 20 Month
  Sex: Female
  Weight: 8.16 kg

DRUGS (2)
  1. OMEPRAZOLE [Suspect]
     Indication: GASTROOESOPHAGEAL REFLUX DISEASE
     Route: 048
     Dates: start: 20120901, end: 20140221
  2. OMEPRAZOLE [Suspect]
     Indication: ASPIRATION
     Route: 048
     Dates: start: 20120901, end: 20140221

REACTIONS (4)
  - Protrusion tongue [None]
  - Dysphagia [None]
  - Choking [None]
  - Vomiting [None]
